FAERS Safety Report 23581420 (Version 3)
Quarter: 2024Q1

REPORT INFORMATION
  Report Type: Spontaneous
  Country: US (occurrence: US)
  Receive Date: 20240229
  Receipt Date: 20240312
  Transmission Date: 20240409
  Serious: No
  Sender: FDA-Public Use
  Company Number: US-PFIZER INC-202400050909

PATIENT
  Age: 42 Year
  Sex: Male
  Weight: 85.7 kg

DRUGS (1)
  1. TESTOSTERONE CYPIONATE [Suspect]
     Active Substance: TESTOSTERONE CYPIONATE
     Indication: Hypopituitarism
     Dosage: 1 ML INTRAMUSCULARLY EVERY TWO WEEKS
     Route: 030
     Dates: start: 20240218

REACTIONS (4)
  - Injection site pain [Unknown]
  - Poor quality product administered [Unknown]
  - Product colour issue [Unknown]
  - Product deposit [Unknown]
